FAERS Safety Report 4478931-6 (Version None)
Quarter: 2004Q4

REPORT INFORMATION
  Report Type: 
  Country: None (occurrence: None)
  Receive Date: 20041014
  Receipt Date: 20040928
  Transmission Date: 20050328
  Serious: Yes (Hospitalization)
  Sender: FDA-Public Use
  Company Number: DSA_25039_2004

PATIENT
  Age: 45 Year
  Sex: Male

DRUGS (3)
  1. TEMESTA [Suspect]
     Dosage: 1 MG Q DAY PO
     Route: 048
     Dates: start: 20040716, end: 20040721
  2. OFLOCET [Suspect]
     Indication: INTERVERTEBRAL DISCITIS
     Dosage: 200 MG Q DAY PO
     Route: 048
     Dates: start: 20040708, end: 20040722
  3. OXACILLIN SODIUM [Suspect]
     Indication: INTERVERTEBRAL DISCITIS
     Dosage: 8 G Q DAY PO
     Route: 048
     Dates: start: 20040627, end: 20040722

REACTIONS (3)
  - AGRANULOCYTOSIS [None]
  - MARROW HYPERPLASIA [None]
  - NEUTROPHIL COUNT INCREASED [None]
